FAERS Safety Report 8126059-6 (Version None)
Quarter: 2012Q1

REPORT INFORMATION
  Report Type: 
  Country: None (occurrence: None)
  Receive Date: 20120209
  Receipt Date: 20120127
  Transmission Date: 20120608
  Serious: Yes (Hospitalization)
  Sender: FDA-Public Use
  Company Number: PHFR2011GB006347

PATIENT
  Sex: Female

DRUGS (11)
  1. CLOZARIL [Suspect]
     Indication: SCHIZOPHRENIA
     Dosage: 600 MG, UNK
     Route: 048
     Dates: start: 20070903
  2. CLOZARIL [Suspect]
     Dosage: 300 MG, UNK
     Route: 048
  3. SIMVASTATIN [Concomitant]
     Dosage: 20 MG
     Route: 048
  4. PROCYCLIDINE HYDROCHLORIDE 2MG TAB [Concomitant]
     Dosage: 10 MG
     Route: 048
  5. FLUTICASONE PROPIONATE/SALMETEROL [Concomitant]
     Dosage: 500 UG, UNK
  6. FOLIC ACID [Concomitant]
     Dosage: 5 MG, UNK
     Route: 048
  7. TEMAZEPAM [Concomitant]
     Dosage: 20 MG
     Route: 048
  8. ALBUTEROL SULFATE AUTOHALER [Concomitant]
     Dosage: 20 MG
  9. VALPROIC ACID [Concomitant]
     Dosage: 2.5 MG
     Route: 048
  10. VENLAFAXINE [Concomitant]
     Dosage: 300 MG
     Route: 048
  11. ASPIRIN [Concomitant]
     Dosage: 75 MG
     Route: 048

REACTIONS (6)
  - LOWER RESPIRATORY TRACT INFECTION [None]
  - SOMNOLENCE [None]
  - SEDATION [None]
  - DYSPNOEA [None]
  - THROMBOCYTOPENIA [None]
  - OXYGEN SATURATION DECREASED [None]
